APPROVED DRUG PRODUCT: EMTRICITABINE AND TENOFOVIR ALAFENAMIDE FUMARATE
Active Ingredient: EMTRICITABINE; TENOFOVIR ALAFENAMIDE FUMARATE
Strength: 200MG;EQ 25MG BASE
Dosage Form/Route: TABLET;ORAL
Application: A214053 | Product #002
Applicant: APOTEX INC
Approved: May 17, 2024 | RLD: No | RS: No | Type: DISCN